APPROVED DRUG PRODUCT: ARGATROBAN IN SODIUM CHLORIDE
Active Ingredient: ARGATROBAN
Strength: 125MG/125ML (1MG/ML)
Dosage Form/Route: INJECTABLE;INTRAVENOUS
Application: A205570 | Product #001 | TE Code: AP
Applicant: GLAND PHARMA LTD
Approved: May 22, 2017 | RLD: No | RS: No | Type: RX